FAERS Safety Report 4750041-X (Version None)
Quarter: 2005Q3

REPORT INFORMATION
  Report Type: 
  Country: None (occurrence: None)
  Receive Date: 20050822
  Receipt Date: 20050809
  Transmission Date: 20060218
  Serious: Yes (Death)
  Sender: FDA-Public Use
  Company Number: 214165

PATIENT
  Age: 70 Year
  Sex: Male

DRUGS (9)
  1. RITUXIMAB (RITUXIMAB) CONC FOR SOLUTION FOR INFUSION [Suspect]
     Indication: NON-HODGKIN'S LYMPHOMA
     Dosage: 600 MG, 1/MONTH, INTRAVENOUS
     Route: 042
     Dates: start: 20040705, end: 20040902
  2. CYCLOPHOSPHAMIDE [Suspect]
     Indication: NON-HODGKIN'S LYMPHOMA
     Dosage: 1050 MG, INTRAVENOUS
     Route: 042
     Dates: start: 20040707, end: 20040902
  3. VINCRISTINE [Suspect]
     Indication: NON-HODGKIN'S LYMPHOMA
     Dosage: 3 MG, INTRAVENOUS
     Route: 042
     Dates: start: 20040707, end: 20040902
  4. ADRIAMYCIN PFS [Suspect]
     Indication: NON-HODGKIN'S LYMPHOMA
     Dosage: 60 MG, INTRAVENOUS
     Route: 042
  5. PREDNISONE [Suspect]
     Indication: NON-HODGKIN'S LYMPHOMA
     Dosage: 80 MG, ORAL
     Route: 048
     Dates: start: 20040707, end: 20040902
  6. G-CSF (FILGRASTIM) [Concomitant]
  7. NEUTROGIN (LENOGRASTIM) [Concomitant]
  8. CELESTAMINE (DEXCHLORPHENIRAMINE MALEATE, BETAMETHASONE) [Concomitant]
  9. BRUFEN (IBUPROFEN) [Concomitant]

REACTIONS (3)
  - CARDIO-RESPIRATORY ARREST [None]
  - HERPES ZOSTER [None]
  - PNEUMONIA [None]
